FAERS Safety Report 19694838 (Version 1)
Quarter: 2021Q3

REPORT INFORMATION
  Report Type: Spontaneous
  Country: US (occurrence: US)
  Receive Date: 20210813
  Receipt Date: 20210813
  Transmission Date: 20211014
  Serious: No
  Sender: FDA-Public Use
  Company Number: US-ELI_LILLY_AND_COMPANY-US202108005681

PATIENT
  Sex: Female

DRUGS (2)
  1. TRULICITY [Suspect]
     Active Substance: DULAGLUTIDE
     Indication: TYPE 2 DIABETES MELLITUS
     Dosage: UNK UNK, WEEKLY (1/W)
     Route: 065
  2. TRULICITY [Suspect]
     Active Substance: DULAGLUTIDE
     Dosage: 4.5 MG, WEEKLY (1/W)
     Route: 065

REACTIONS (4)
  - Pain of skin [Unknown]
  - Diarrhoea [Not Recovered/Not Resolved]
  - Mass [Not Recovered/Not Resolved]
  - Neck mass [Not Recovered/Not Resolved]

NARRATIVE: CASE EVENT DATE: 2019
